FAERS Safety Report 6962015-9 (Version None)
Quarter: 2010Q3

REPORT INFORMATION
  Report Type: 
  Country: None (occurrence: None)
  Receive Date: 20100902
  Receipt Date: 20100826
  Transmission Date: 20110219
  Serious: Yes (Death, Life-Threatening, Hospitalization)
  Sender: FDA-Public Use
  Company Number: DE-NOVOPROD-284632

PATIENT
  Age: 74 Year
  Sex: Male
  Weight: 125 kg

DRUGS (14)
  1. ACTRAPHANE 30 PENFILL [Suspect]
     Indication: TYPE 2 DIABETES MELLITUS
     Dosage: 45 IU, BID
     Route: 058
     Dates: start: 20050101, end: 20080801
  2. ACTRAPHANE 30 PENFILL [Suspect]
     Dosage: 60 IU, BID
     Route: 058
     Dates: start: 20080801, end: 20080901
  3. ACTRAPHANE 30 PENFILL [Suspect]
     Dosage: 45 IU, BID
     Route: 058
     Dates: start: 20080901, end: 20080921
  4. ACTRAPHANE 30 PENFILL [Suspect]
     Dosage: 60 IU, QD
     Route: 058
     Dates: start: 20080923, end: 20080923
  5. ACTRAPHANE 30 PENFILL [Suspect]
     Dosage: 50 IU, QD
     Route: 058
     Dates: start: 20080925
  6. CEFTRIAXONE [Concomitant]
     Dosage: 2 G, QD
     Route: 042
     Dates: start: 20080923
  7. LASIX [Concomitant]
     Dosage: 40 MG, QD
     Dates: start: 20080923
  8. ALLOPURINOL [Concomitant]
     Dosage: 300 MG, QD
     Route: 048
     Dates: start: 20050101
  9. ASPIRIN [Concomitant]
     Dosage: 100 MG, QD
     Route: 048
     Dates: start: 20050101
  10. FUROSEMID                          /00032601/ [Concomitant]
     Dosage: 20 MG, BID
     Route: 048
     Dates: start: 20050101
  11. SIMVASTATIN [Concomitant]
     Dosage: 20 MG, QD
     Route: 048
     Dates: start: 20050101
  12. XIPAMID [Concomitant]
     Dosage: 20 MG, QD
     Route: 048
     Dates: start: 20050101, end: 20080926
  13. BISOPROLOL FUMARATE [Interacting]
     Dosage: 5 MG, QD
     Route: 048
     Dates: start: 20050101
  14. ENALAPRIL [Interacting]
     Dosage: 5 MG, QD
     Route: 048
     Dates: start: 20080101

REACTIONS (9)
  - BLOOD GLUCOSE DECREASED [None]
  - BLOOD GLUCOSE INCREASED [None]
  - CARDIAC ARREST [None]
  - DELIRIUM TREMENS [None]
  - DIARRHOEA [None]
  - FALL [None]
  - HYPOGLYCAEMIA [None]
  - RENAL FAILURE [None]
  - RHABDOMYOLYSIS [None]
